FAERS Safety Report 8343711-8 (Version None)
Quarter: 2012Q2

REPORT INFORMATION
  Report Type: 
  Country: None (occurrence: None)
  Receive Date: 20120508
  Receipt Date: 20120306
  Transmission Date: 20120825
  Serious: No
  Sender: FDA-Public Use
  Company Number: US-BAUSCH-2012BL001645

PATIENT
  Age: 80 Year
  Sex: Male

DRUGS (1)
  1. LOTEMAX [Suspect]
     Indication: EYE INFLAMMATION
     Route: 047
     Dates: start: 20120101, end: 20120101

REACTIONS (2)
  - OCULAR HYPERAEMIA [None]
  - EYE IRRITATION [None]
